FAERS Safety Report 21730355 (Version 1)
Quarter: 2022Q4

REPORT INFORMATION
  Report Type: Report from Study
  Country: BR (occurrence: BR)
  Receive Date: 20221214
  Receipt Date: 20221214
  Transmission Date: 20230113
  Serious: Yes (Hospitalization, Disabling)
  Sender: FDA-Public Use
  Company Number: BR-ABBVIE-4193678

PATIENT
  Sex: Male
  Weight: 75 kg

DRUGS (1)
  1. RINVOQ [Suspect]
     Active Substance: UPADACITINIB
     Indication: Dermatitis atopic
     Route: 048
     Dates: start: 20220524

REACTIONS (4)
  - Hypersensitivity [Unknown]
  - Mobility decreased [Unknown]
  - Dry skin [Unknown]
  - Contusion [Unknown]

NARRATIVE: CASE EVENT DATE: 20220101
